FAERS Safety Report 17119595 (Version 1)
Quarter: 2019Q4

REPORT INFORMATION
  Report Type: Spontaneous
  Country: US (occurrence: US)
  Receive Date: 20191206
  Receipt Date: 20191206
  Transmission Date: 20200122
  Serious: No
  Sender: FDA-Public Use
  Company Number: US-ASTRAZENECA-2019SF61283

PATIENT
  Sex: Female

DRUGS (1)
  1. BYDUREON [Suspect]
     Active Substance: EXENATIDE
     Route: 058
     Dates: start: 201909

REACTIONS (7)
  - Decreased appetite [Unknown]
  - Injection site nodule [Unknown]
  - Blood glucose increased [Unknown]
  - Injection site pruritus [Unknown]
  - Product use issue [Unknown]
  - Nausea [Unknown]
  - Regurgitation [Unknown]
